FAERS Safety Report 5644012-9 (Version None)
Quarter: 2008Q1

REPORT INFORMATION
  Report Type: 
  Country: None (occurrence: None)
  Receive Date: 20080131
  Receipt Date: 20071123
  Transmission Date: 20080703
  Serious: Yes (Hospitalization)
  Sender: FDA-Public Use
  Company Number: 163-21880-07111371

PATIENT
  Age: 53 Year
  Sex: Female

DRUGS (1)
  1. REVLIMID [Suspect]
     Indication: MULTIPLE MYELOMA
     Dosage: 10 MG, EVERY NIGHT AT BEDTIME, ORAL
     Route: 048

REACTIONS (2)
  - BLOOD COUNT ABNORMAL [None]
  - URINARY TRACT INFECTION [None]
